FAERS Safety Report 12652642 (Version 1)
Quarter: 2016Q3

REPORT INFORMATION
  Report Type: Spontaneous
  Country: CH (occurrence: CH)
  Receive Date: 20160815
  Receipt Date: 20160815
  Transmission Date: 20161109
  Serious: Yes (Hospitalization)
  Sender: FDA-Public Use
  Company Number: CH-MEDA-2016080035

PATIENT
  Age: 54 Year
  Sex: Female

DRUGS (15)
  1. SANDIMMUN NEORAL [Suspect]
     Active Substance: CYCLOSPORINE
     Indication: IMMUNOSUPPRESSION
  2. NORMACOL [Concomitant]
     Active Substance: KARAYA GUM
  3. PREDNISON STREULI [Concomitant]
  4. KCL HAUSMANN [Concomitant]
  5. INSULIN [Concomitant]
     Active Substance: INSULIN NOS
  6. CERTICAN [Suspect]
     Active Substance: EVEROLIMUS
     Indication: IMMUNOSUPPRESSION
  7. CALCIMAGON-D3 [Concomitant]
     Active Substance: CALCIUM\CHOLECALCIFEROL
  8. ESOMEP MUPS [Suspect]
     Active Substance: OMEPRAZOLE
  9. TAZOBAC [Suspect]
     Active Substance: PIPERACILLIN SODIUM\TAZOBACTAM SODIUM
     Indication: RESPIRATORY TRACT INFECTION
  10. ALDACTONE [Suspect]
     Active Substance: SPIRONOLACTONE
  11. MARCOUMAR [Concomitant]
     Active Substance: PHENPROCOUMON
  12. FLATULEX [Concomitant]
     Active Substance: ACTIVATED CHARCOAL\DIMETHICONE
  13. TOREM [Suspect]
     Active Substance: TORSEMIDE
  14. IMUREK [Suspect]
     Active Substance: AZATHIOPRINE
  15. FOSAMAX [Concomitant]
     Active Substance: ALENDRONATE SODIUM

REACTIONS (2)
  - Febrile infection [Recovered/Resolved]
  - Pancytopenia [Unknown]

NARRATIVE: CASE EVENT DATE: 201607
